FAERS Safety Report 8206757-6 (Version None)
Quarter: 2012Q1

REPORT INFORMATION
  Report Type: 
  Country: None (occurrence: None)
  Receive Date: 20120314
  Receipt Date: 20120308
  Transmission Date: 20120608
  Serious: Yes (Other)
  Sender: FDA-Public Use
  Company Number: US-SP-2011-12361

PATIENT
  Sex: Female

DRUGS (5)
  1. ESTROGEN/PROGESTERONE [Concomitant]
  2. TUBERSOL [Suspect]
     Indication: TUBERCULIN TEST
     Route: 023
     Dates: start: 20111107, end: 20111107
  3. CARDIZEM [Concomitant]
  4. LEXAPRO [Concomitant]
  5. TRAZODONE HCL [Concomitant]

REACTIONS (4)
  - FLUSHING [None]
  - DYSPNOEA [None]
  - WHEEZING [None]
  - CHEST DISCOMFORT [None]
